FAERS Safety Report 18148763 (Version 9)
Quarter: 2022Q4

REPORT INFORMATION
  Report Type: Spontaneous
  Country: JP (occurrence: JP)
  Receive Date: 20200814
  Receipt Date: 20221019
  Transmission Date: 20230112
  Serious: Yes (Hospitalization, Other)
  Sender: FDA-Public Use
  Company Number: JP-UNITED THERAPEUTICS-UNT-2017-016752

PATIENT
  Age: 42 Year
  Sex: Male
  Weight: 73.75 kg

DRUGS (15)
  1. REMODULIN [Suspect]
     Active Substance: TREPROSTINIL
     Indication: Heritable pulmonary arterial hypertension
     Dosage: 0.001 ?G/KG, CONTINUING
     Route: 058
     Dates: start: 20171117
  2. REMODULIN [Suspect]
     Active Substance: TREPROSTINIL
     Dosage: 0.005 ?G/KG, CONTINUING
     Route: 058
     Dates: start: 201711, end: 201711
  3. REMODULIN [Suspect]
     Active Substance: TREPROSTINIL
     Dosage: UNK, CONTINUING (AT INFUSION RATE OF 31 MCL/HR)
     Route: 058
     Dates: start: 20171122
  4. REMODULIN [Suspect]
     Active Substance: TREPROSTINIL
     Dosage: 0.160 ?G/KG, CONTINUING
     Route: 058
  5. REMODULIN [Suspect]
     Active Substance: TREPROSTINIL
     Dosage: 0.169 ?G/KG, CONTINUING
     Route: 058
     Dates: start: 201807
  6. REMODULIN [Suspect]
     Active Substance: TREPROSTINIL
     Dosage: 0.225 ?G/KG, CONTINUING
     Route: 058
  7. REMODULIN [Suspect]
     Active Substance: TREPROSTINIL
     Dosage: APPROXIMATELY 0.230 ?G/KG, CONTINUING
     Route: 058
  8. REMODULIN [Suspect]
     Active Substance: TREPROSTINIL
     Dosage: 0.2236 ?G/KG, CONTINUING
     Route: 058
     Dates: end: 202106
  9. REMODULIN [Suspect]
     Active Substance: TREPROSTINIL
     Indication: Heritable pulmonary arterial hypertension
     Dosage: UNK, CONTINUING
     Route: 041
     Dates: start: 202106
  10. REMODULIN [Suspect]
     Active Substance: TREPROSTINIL
     Dosage: 0.1584 ?G/KG, CONTINUING
     Route: 041
  11. OPSUMIT [Concomitant]
     Active Substance: MACITENTAN
     Indication: Heritable pulmonary arterial hypertension
     Dosage: 10 MG, QD
     Route: 048
     Dates: start: 201708
  12. ADCIRCA [Concomitant]
     Active Substance: TADALAFIL
     Indication: Heritable pulmonary arterial hypertension
     Dosage: UNK
     Route: 048
     Dates: start: 201509
  13. ALLOPURINOL [Concomitant]
     Active Substance: ALLOPURINOL
     Indication: Product used for unknown indication
     Dosage: UNK
     Route: 048
  14. LOXOPROFEN [Concomitant]
     Active Substance: LOXOPROFEN
     Indication: Prophylaxis
     Dosage: 60 MG, Q8H
     Route: 048
     Dates: start: 20171116
  15. RIOCIGUAT [Concomitant]
     Active Substance: RIOCIGUAT
     Indication: Product used for unknown indication
     Dosage: 7.5 MG, QD
     Route: 065

REACTIONS (21)
  - Device related infection [Recovering/Resolving]
  - Klebsiella infection [Not Recovered/Not Resolved]
  - Dyspnoea [Recovering/Resolving]
  - Platelet count decreased [Recovering/Resolving]
  - Device related sepsis [Unknown]
  - Urinary tract infection [Unknown]
  - Injection site erythema [Not Recovered/Not Resolved]
  - Injection site pain [Recovered/Resolved]
  - Injection site haemorrhage [Unknown]
  - Catheter site extravasation [Unknown]
  - Injection site infection [Unknown]
  - Injection site pruritus [Recovered/Resolved]
  - Injection site rash [Recovered/Resolved]
  - Injection site hypersensitivity [Recovering/Resolving]
  - Catheter site extravasation [Not Recovered/Not Resolved]
  - Injection site induration [Not Recovered/Not Resolved]
  - Headache [Unknown]
  - Nausea [Recovered/Resolved]
  - Pyrexia [Unknown]
  - Haemodynamic instability [Unknown]
  - Hypotension [Unknown]

NARRATIVE: CASE EVENT DATE: 20171101
